FAERS Safety Report 6093386-6 (Version None)
Quarter: 2009Q1

REPORT INFORMATION
  Report Type: 
  Country: None (occurrence: None)
  Receive Date: 20090226
  Receipt Date: 20090219
  Transmission Date: 20090719
  Serious: Yes (Hospitalization)
  Sender: FDA-Public Use
  Company Number: ES-ROCHE-616181

PATIENT
  Age: 64 Year
  Sex: Male

DRUGS (9)
  1. ROCEPHIN KIT [Suspect]
     Indication: ANTIBIOTIC THERAPY
     Route: 030
     Dates: start: 20081213, end: 20081216
  2. DORMICUM (INJ) [Suspect]
     Indication: SLEEP DISORDER
     Route: 048
     Dates: start: 20081211, end: 20081213
  3. PRIMPERAN [Suspect]
     Indication: DRUG USE FOR UNKNOWN INDICATION
     Route: 048
     Dates: start: 20080101
  4. TRANSTEC [Suspect]
     Indication: DRUG USE FOR UNKNOWN INDICATION
     Route: 062
     Dates: start: 20081101, end: 20081208
  5. ATROVENT [Suspect]
     Indication: PNEUMONIA
     Route: 055
     Dates: start: 20080101
  6. DURAGESIC-100 [Suspect]
     Indication: ANALGESIC THERAPY
     Dosage: DRUG NAME REPORTED AS: DUROGESIC MATRIX 75.
     Route: 062
     Dates: start: 20081208, end: 20081216
  7. ENANTYUM [Suspect]
     Indication: ANALGESIC THERAPY
     Route: 048
     Dates: start: 20081212, end: 20081216
  8. ESERTIA [Suspect]
     Indication: DEPRESSION
     Route: 048
     Dates: start: 20081209, end: 20081216
  9. MST [Suspect]
     Indication: ANALGESIC THERAPY
     Route: 048
     Dates: start: 20081209, end: 20081213

REACTIONS (2)
  - HEPATIC ENCEPHALOPATHY [None]
  - HEPATITIS FULMINANT [None]
